FAERS Safety Report 4405342-1 (Version None)
Quarter: 2004Q3

REPORT INFORMATION
  Report Type: 
  Country: None (occurrence: None)
  Receive Date: 20040715
  Receipt Date: 20040705
  Transmission Date: 20050211
  Serious: Yes (Hospitalization)
  Sender: FDA-Public Use
  Company Number: 2004GB01397

PATIENT
  Age: 60 Year
  Sex: Female
  Weight: 54 kg

DRUGS (6)
  1. FASLODEX [Suspect]
     Indication: BREAST CANCER
     Dosage: 250 MG MONTH; IM
     Route: 030
     Dates: start: 20040401
  2. FASLODEX [Suspect]
     Indication: OESTROGEN RECEPTOR ASSAY POSITIVE
     Dosage: 250 MG MONTH; IM
     Route: 030
     Dates: start: 20040401
  3. THYROXINE [Concomitant]
  4. RALOXIFENE HCL [Concomitant]
  5. QUESTRAN [Concomitant]
  6. HALOPERIDOL [Concomitant]

REACTIONS (2)
  - HYPERCALCAEMIA [None]
  - OEDEMA [None]
